FAERS Safety Report 20766579 (Version 2)
Quarter: 2022Q3

REPORT INFORMATION
  Report Type: Report from Study
  Country: US (occurrence: US)
  Receive Date: 20220428
  Receipt Date: 20220801
  Transmission Date: 20221026
  Serious: Yes (Hospitalization)
  Sender: FDA-Public Use
  Company Number: US-ACADIA PHARMACEUTICALS INC.-ACA-2022-PIM-001458

PATIENT
  Age: 74 Year
  Sex: Male

DRUGS (21)
  1. NUPLAZID [Suspect]
     Active Substance: PIMAVANSERIN TARTRATE
     Indication: Parkinson^s disease
     Dosage: 10 MILLIGRAM, QD
     Route: 048
     Dates: start: 20220115
  2. CARBIDOPA\LEVODOPA [Concomitant]
     Active Substance: CARBIDOPA\LEVODOPA
     Indication: Parkinson^s disease
     Dosage: 10-100 MG, 1 TABLET, TWICE DAILY
     Route: 048
     Dates: start: 2017
  3. CARBIDOPA [Concomitant]
     Active Substance: CARBIDOPA
     Indication: Parkinson^s disease
  4. LOVASTATIN [Concomitant]
     Active Substance: LOVASTATIN
     Indication: Hyperlipidaemia
     Dosage: 40 MILLIGRAM, EVERY BEDTIME
     Route: 048
     Dates: start: 2000
  5. HYDROCHLOROTHIAZIDE [Concomitant]
     Active Substance: HYDROCHLOROTHIAZIDE
     Indication: Hypertension
     Dosage: 25 MILLIGRAM, Q1 TABLET, QD
     Route: 048
     Dates: start: 2000
  6. ESOMEPRAZOLE [Concomitant]
     Active Substance: ESOMEPRAZOLE
     Dosage: UNK
     Dates: start: 2010
  7. MELATONIN [Concomitant]
     Active Substance: MELATONIN
     Indication: Insomnia
     Dosage: 3 MILLIGRAM, EVERY BED TIME AS NEEDED
     Route: 048
  8. TRAZODONE HCL [Concomitant]
     Active Substance: TRAZODONE HYDROCHLORIDE
     Indication: Insomnia
     Dosage: 50 MILLIGRAM, EVERY BED TIME
     Route: 048
  9. VENLAFAXINE HCL [Concomitant]
     Active Substance: VENLAFAXINE HYDROCHLORIDE
     Indication: Major depression
     Dosage: 225 MILLIGRAM, EVERY BED TIME
     Route: 048
     Dates: end: 20220425
  10. VENLAFAXINE HCL [Concomitant]
     Active Substance: VENLAFAXINE HYDROCHLORIDE
     Dosage: 150 MILLIGRAM, QD
  11. HYDRALAZINE [Concomitant]
     Active Substance: HYDRALAZINE HYDROCHLORIDE
     Indication: Hypertension
     Dosage: 25 MILLIGRAM, EVERY 8 HOURS, QD
     Route: 048
  12. MAPAP [Concomitant]
     Active Substance: ACETAMINOPHEN
     Indication: Pain
     Dosage: 325 MILLIGRAM, 2 TABLET , EVERY 6 HOURS
     Route: 048
  13. REFRESH TEARS LUBRICANT [Concomitant]
     Active Substance: CARBOXYMETHYLCELLULOSE SODIUM
     Indication: Dry eye
     Dosage: 0.1% 1 DROPS THREE TIMES A DAY, PRN
  14. ALUMINIUM HYDROXIDE-MAGNESIUM CARBONATE [Concomitant]
     Indication: Gastrooesophageal reflux disease
     Dosage: 30 ML, THREE TIMES A DAY, PRN
     Route: 048
  15. LOPERAMIDE HYDROCHLORIDE [Concomitant]
     Active Substance: LOPERAMIDE HYDROCHLORIDE
     Indication: Diarrhoea
     Dosage: 2 MILLIGRAM, THREE TIMES A DAY PRN
     Route: 048
  16. MILK OF MAGNESIA [Concomitant]
     Active Substance: MAGNESIUM HYDROXIDE
     Indication: Constipation
     Dosage: 30 ML, PRN, DAILY
     Route: 048
  17. MIRALAX [Concomitant]
     Active Substance: POLYETHYLENE GLYCOL 3350
     Indication: Constipation
     Dosage: 17 GRAM, DAILY
     Route: 048
     Dates: end: 20220426
  18. CARMEX [ALUMINIUM SALICYLATE;CAMPHOR;MENTHOL] [Concomitant]
     Indication: Lip dry
     Dosage: THREE TIMES A DAY, PRN
  19. ROPINIROLE [Concomitant]
     Active Substance: ROPINIROLE
     Dosage: 0.25 MG, DAILY
  20. CLONIDINE [Concomitant]
     Active Substance: CLONIDINE
     Dosage: 0.1 MG, TWICE DAILY
  21. EFFEXOR [Concomitant]
     Active Substance: VENLAFAXINE HYDROCHLORIDE
     Indication: Depression

REACTIONS (7)
  - Mental status changes [Unknown]
  - Dementia [Not Recovered/Not Resolved]
  - Aggression [Recovered/Resolved]
  - Agitation [Unknown]
  - Confusional state [Unknown]
  - Treatment noncompliance [Unknown]
  - Product dose omission issue [Not Recovered/Not Resolved]

NARRATIVE: CASE EVENT DATE: 20220415
